FAERS Safety Report 6451307-8 (Version None)
Quarter: 2009Q4

REPORT INFORMATION
  Report Type: 
  Country: None (occurrence: None)
  Receive Date: 20091123
  Receipt Date: 20091113
  Transmission Date: 20100525
  Serious: Yes (Hospitalization)
  Sender: FDA-Public Use
  Company Number: IT-ABBOTT-09P-083-0608568-00

PATIENT
  Sex: Female

DRUGS (3)
  1. CLARITHROMYCIN [Suspect]
     Indication: HELICOBACTER INFECTION
     Dosage: 1 UNIT DAILY
     Dates: start: 20091015, end: 20091017
  2. AMOXICILLIN [Suspect]
     Indication: HELICOBACTER INFECTION
     Dosage: 3 UNITS DAILY
     Route: 048
     Dates: start: 20091015, end: 20091017
  3. ESOPRAL [Concomitant]
     Indication: HELICOBACTER INFECTION
     Dates: start: 20091015, end: 20091017

REACTIONS (6)
  - BRADYCARDIA [None]
  - CHILLS [None]
  - ERYTHEMA [None]
  - GENERALISED OEDEMA [None]
  - PARAESTHESIA [None]
  - PRURITUS GENERALISED [None]
